FAERS Safety Report 6743051-4 (Version None)
Quarter: 2010Q2

REPORT INFORMATION
  Report Type: 
  Country: None (occurrence: None)
  Receive Date: 20100527
  Receipt Date: 20100517
  Transmission Date: 20101027
  Serious: Yes (Disabling, Other)
  Sender: FDA-Public Use
  Company Number: NL-SHIRE-SPV1-2010-00961

PATIENT

DRUGS (4)
  1. VELAGLUCERASE ALFA [Suspect]
     Indication: GAUCHER'S DISEASE
     Dosage: 400 DF, 1X/WEEK
     Route: 042
     Dates: start: 20091120
  2. COZAAR [Concomitant]
     Indication: HYPERTENSION
     Dosage: 50 MG, 1X/DAY:QD
  3. HYDROCHLOROTHIAZIDE [Concomitant]
     Indication: HYPERTENSION
     Dosage: 25 MG, 1X/DAY:QD
  4. ERGOCALCIFEROL [Concomitant]
     Indication: DRUG USE FOR UNKNOWN INDICATION
     Dosage: 400 DF, 1X/DAY:QD

REACTIONS (1)
  - SPINAL COMPRESSION FRACTURE [None]
